FAERS Safety Report 11449900 (Version 1)
Quarter: 2015Q3

REPORT INFORMATION
  Report Type: Spontaneous
  Country: US (occurrence: US)
  Receive Date: 20150903
  Receipt Date: 20150903
  Transmission Date: 20151125
  Serious: Yes (Other)
  Sender: FDA-Public Use
  Company Number: US-ROCHE-1059658

PATIENT
  Sex: Female

DRUGS (10)
  1. TELAPREVIR [Suspect]
     Active Substance: TELAPREVIR
     Route: 065
  2. RIBAVIRIN. [Suspect]
     Active Substance: RIBAVIRIN
     Route: 065
  3. NEUPOGEN [Concomitant]
     Active Substance: FILGRASTIM
  4. PEGASYS [Suspect]
     Active Substance: PEGINTERFERON ALFA-2A
     Route: 058
  5. PEGASYS [Suspect]
     Active Substance: PEGINTERFERON ALFA-2A
     Indication: CHRONIC HEPATITIS C
     Route: 058
     Dates: start: 20110803
  6. PROCRIT [Concomitant]
     Active Substance: ERYTHROPOIETIN
  7. RIBAVIRIN. [Suspect]
     Active Substance: RIBAVIRIN
     Indication: CHRONIC HEPATITIS C
     Dosage: IN DIVIDED DOSES
     Route: 048
     Dates: start: 20110803
  8. PEGASYS [Suspect]
     Active Substance: PEGINTERFERON ALFA-2A
     Route: 065
  9. RIBAVIRIN. [Suspect]
     Active Substance: RIBAVIRIN
     Dosage: DIVIDED DOSES
     Route: 048
  10. TELAPREVIR [Suspect]
     Active Substance: TELAPREVIR
     Indication: CHRONIC HEPATITIS C
     Route: 065
     Dates: start: 20110803, end: 20111019

REACTIONS (9)
  - Anaemia [Unknown]
  - Panic reaction [Unknown]
  - Blood potassium decreased [Unknown]
  - Muscle twitching [Unknown]
  - Platelet count abnormal [Unknown]
  - Muscle spasms [Unknown]
  - Pain in extremity [Unknown]
  - Viral load increased [Not Recovered/Not Resolved]
  - Pruritus [Not Recovered/Not Resolved]
